FAERS Safety Report 4855918-2 (Version None)
Quarter: 2005Q4

REPORT INFORMATION
  Report Type: 
  Country: None (occurrence: None)
  Receive Date: 20051216
  Receipt Date: 20051125
  Transmission Date: 20060501
  Serious: Yes (Hospitalization)
  Sender: FDA-Public Use
  Company Number: JP-JPN-A20052849

PATIENT
  Sex: Male
  Weight: 3.3 kg

DRUGS (2)
  1. ZOVIRAX [Suspect]
     Indication: ENCEPHALITIS HERPES
     Dosage: 60MG VARIABLE DOSE
     Route: 042
     Dates: start: 20051110
  2. SANDIMMUNE [Suspect]
     Indication: HISTIOCYTOSIS HAEMATOPHAGIC
     Route: 042
     Dates: start: 20051116, end: 20051121

REACTIONS (3)
  - OEDEMA [None]
  - RENAL FAILURE [None]
  - URINE OUTPUT DECREASED [None]
